FAERS Safety Report 6190745-8 (Version None)
Quarter: 2009Q2

REPORT INFORMATION
  Report Type: 
  Country: None (occurrence: None)
  Receive Date: 20090514
  Receipt Date: 20090507
  Transmission Date: 20091009
  Serious: Yes (Hospitalization, Other)
  Sender: FDA-Public Use
  Company Number: FR-ELI_LILLY_AND_COMPANY-FR200902005688

PATIENT
  Age: 71 Year
  Sex: Female
  Weight: 78 kg

DRUGS (9)
  1. BYETTA [Suspect]
     Indication: TYPE 2 DIABETES MELLITUS
     Dosage: 5 UG, UNK
     Route: 058
     Dates: start: 20080801, end: 20080901
  2. PREVISCAN [Concomitant]
  3. AMARYL [Concomitant]
  4. ALLOPURINOL [Concomitant]
  5. LEVOTHYROX [Concomitant]
  6. ELISOR [Concomitant]
  7. EUPANTOL [Concomitant]
  8. GLUCOPHAGE [Concomitant]
  9. LEVEMIR [Concomitant]

REACTIONS (4)
  - ANOREXIA [None]
  - NAUSEA [None]
  - VOMITING [None]
  - WEIGHT DECREASED [None]
